FAERS Safety Report 8173423-5 (Version None)
Quarter: 2012Q1

REPORT INFORMATION
  Report Type: 
  Country: None (occurrence: None)
  Receive Date: 20120229
  Receipt Date: 20120226
  Transmission Date: 20120608
  Serious: Yes (Hospitalization)
  Sender: FDA-Public Use
  Company Number: US-SHIRE-ALL1-2012-01124

PATIENT
  Age: 49 Year
  Sex: Male
  Weight: 122.45 kg

DRUGS (2)
  1. FOSRENOL [Suspect]
     Dosage: 2000 MG, 3X/DAY:TID (TWO 1000 MG TABLETS)
     Route: 048
     Dates: start: 20120201
  2. FOSRENOL [Suspect]
     Indication: HYPERPHOSPHATAEMIA
     Dosage: UNK, UNKNOWN
     Route: 048

REACTIONS (2)
  - OVERDOSE [None]
  - ADVERSE EVENT [None]
